FAERS Safety Report 6861373-3 (Version None)
Quarter: 2010Q3

REPORT INFORMATION
  Report Type: 
  Country: None (occurrence: None)
  Receive Date: 20100715
  Receipt Date: 20071013
  Transmission Date: 20110219
  Serious: Yes (Death)
  Sender: FDA-Public Use
  Company Number: WAES 1007PHL00010

PATIENT
  Age: 49 Year
  Sex: Male

DRUGS (7)
  1. VYTORIN [Suspect]
     Indication: PRODUCT USED FOR UNKNOWN INDICATION
     Dosage: 10-20 MG/DAILY, PO
     Route: 048
  2. ASPIRIN [Concomitant]
  3. FENOFIBRATE [Concomitant]
  4. GLIMEPIRIDE [Concomitant]
  5. PIOGLITAZONE HCL [Concomitant]
  6. PROPYLTHIOURACIL [Concomitant]
  7. SIMVASTATIN [Concomitant]

REACTIONS (7)
  - ACUTE MYOCARDIAL INFARCTION [None]
  - BLOOD PRESSURE INADEQUATELY CONTROLLED [None]
  - DIZZINESS [None]
  - DYSLIPIDAEMIA [None]
  - DYSPHAGIA [None]
  - DYSPNOEA [None]
  - THYROXINE INCREASED [None]
